FAERS Safety Report 6232939-9 (Version None)
Quarter: 2009Q2

REPORT INFORMATION
  Report Type: 
  Country: None (occurrence: None)
  Receive Date: 20090617
  Receipt Date: 20090611
  Transmission Date: 20091009
  Serious: Yes (Hospitalization)
  Sender: FDA-Public Use
  Company Number: FR-ASTRAZENECA-2009CG00896

PATIENT
  Sex: Female
  Weight: 84 kg

DRUGS (5)
  1. ARIMIDEX [Suspect]
     Indication: BREAST CANCER FEMALE
     Route: 048
     Dates: start: 20081020, end: 20090309
  2. LIPANTHYL [Concomitant]
     Indication: HYPERCHOLESTEROLAEMIA
     Route: 048
  3. CHONDROSULF [Concomitant]
     Indication: OSTEOARTHRITIS
     Route: 048
  4. GINKOR FORT [Concomitant]
     Indication: VARICOSE VEIN
     Route: 048
  5. CANOL [Concomitant]
     Indication: PHYTOTHERAPY
     Route: 048

REACTIONS (2)
  - ARTHRALGIA [None]
  - TACHYCARDIA [None]
